FAERS Safety Report 9106878 (Version 7)
Quarter: 2013Q3

REPORT INFORMATION
  Report Type: Spontaneous
  Country: DE (occurrence: DE)
  Receive Date: 20130221
  Receipt Date: 20130717
  Transmission Date: 20140515
  Serious: Yes (Hospitalization, Disabling, Other)
  Sender: FDA-Public Use
  Company Number: DE-BRISTOL-MYERS SQUIBB COMPANY-17377250

PATIENT
  Age: 50 Year
  Sex: Male

DRUGS (3)
  1. NULOJIX [Suspect]
     Dates: start: 2012, end: 2013
  2. MYCOPHENOLATE MOFETIL [Suspect]
     Dates: start: 2012
  3. PREDNISOLONE [Suspect]

REACTIONS (5)
  - Encephalitis post varicella [Not Recovered/Not Resolved]
  - Extrapyramidal disorder [Unknown]
  - Delirium [Unknown]
  - Dysphagia [Unknown]
  - Brain injury [Unknown]
